FAERS Safety Report 7942799-3 (Version None)
Quarter: 2011Q4

REPORT INFORMATION
  Report Type: 
  Country: None (occurrence: None)
  Receive Date: 20111128
  Receipt Date: 20111013
  Transmission Date: 20120403
  Serious: No
  Sender: FDA-Public Use
  Company Number: US-BAYER-2011-100340

PATIENT
  Age: 22 Year
  Sex: Female
  Weight: 82 kg

DRUGS (4)
  1. ALEVE (CAPLET) [Suspect]
     Indication: HEADACHE
  2. ALEVE (CAPLET) [Suspect]
     Indication: EAR PAIN
  3. ALEVE (CAPLET) [Suspect]
     Indication: SINUS CONGESTION
  4. ALEVE (CAPLET) [Suspect]
     Indication: NASOPHARYNGITIS
     Dosage: UNK
     Route: 048
     Dates: start: 20111013, end: 20111013

REACTIONS (1)
  - NO ADVERSE EVENT [None]
